FAERS Safety Report 17433681 (Version 1)
Quarter: 2020Q1

REPORT INFORMATION
  Report Type: Spontaneous
  Country: CA (occurrence: CA)
  Receive Date: 20200219
  Receipt Date: 20200219
  Transmission Date: 20200409
  Serious: Yes (Death)
  Sender: FDA-Public Use
  Company Number: CA-TEVA-2020-CA-1185346

PATIENT
  Age: 73 Year
  Sex: Female
  Weight: 59 kg

DRUGS (4)
  1. GEMCITABINE HYDROCHLORIDE. [Suspect]
     Active Substance: GEMCITABINE HYDROCHLORIDE
     Indication: ADJUVANT THERAPY
     Route: 042
  2. LANSOPRAZOLE. [Concomitant]
     Active Substance: LANSOPRAZOLE
  3. HYDROMORPHONE [Concomitant]
     Active Substance: HYDROMORPHONE
  4. SYNTHROID [Concomitant]
     Active Substance: LEVOTHYROXINE SODIUM

REACTIONS (10)
  - Oedema [Fatal]
  - Respiratory failure [Fatal]
  - Confusional state [Fatal]
  - Jaundice [Fatal]
  - Pruritus [Fatal]
  - Drug-induced liver injury [Fatal]
  - General physical health deterioration [Fatal]
  - Acute kidney injury [Fatal]
  - Acute pulmonary oedema [Fatal]
  - Lung disorder [Fatal]
